FAERS Safety Report 14082912 (Version 2)
Quarter: 2017Q4

REPORT INFORMATION
  Report Type: Spontaneous
  Country: CH (occurrence: CH)
  Receive Date: 20171013
  Receipt Date: 20171020
  Transmission Date: 20180321
  Serious: Yes (Hospitalization)
  Sender: FDA-Public Use
  Company Number: CH-PFIZER INC-2017439880

PATIENT
  Age: 80 Year
  Sex: Male
  Weight: 100 kg

DRUGS (11)
  1. CRESTOR [Concomitant]
     Active Substance: ROSUVASTATIN CALCIUM
     Dosage: 20MG, 1X/DAY (0-0-1-0)
     Route: 048
  2. LASIX [Suspect]
     Active Substance: FUROSEMIDE
     Indication: OEDEMA PERIPHERAL
     Dosage: 40MG, 2X/DAY (2-0-0-0)
     Route: 048
     Dates: start: 201705
  3. DAONIL [Concomitant]
     Active Substance: GLYBURIDE
     Indication: TYPE 2 DIABETES MELLITUS
     Dosage: 5MG, 1X/DAY (1-0-0-0)
     Route: 048
     Dates: end: 20170515
  4. ASPIRIN CARDIO [Concomitant]
     Active Substance: ASPIRIN
     Dosage: 100MG, 1X/DAY (1-0-0-0)
     Route: 048
  5. LEVEMIR [Concomitant]
     Active Substance: INSULIN DETEMIR
     Indication: TYPE 2 DIABETES MELLITUS
     Dosage: 16 IU, 1X/DAY (0-0-16IU-0)
     Route: 058
  6. JANUVIA [Suspect]
     Active Substance: SITAGLIPTIN PHOSPHATE
     Indication: TYPE 2 DIABETES MELLITUS
     Dosage: 100MG, 1X/DAY (1-0-0-0)
     Route: 048
  7. PLAVIX [Concomitant]
     Active Substance: CLOPIDOGREL BISULFATE
     Dosage: 75MG, 1X/DAY (1-0-0-0)
     Route: 048
  8. ALDACTONE [Suspect]
     Active Substance: SPIRONOLACTONE
     Indication: OEDEMA PERIPHERAL
     Dosage: 100MG, 1X/DAY (0-1-0-0)
     Route: 048
     Dates: start: 201705
  9. METFIN [Suspect]
     Active Substance: METFORMIN HYDROCHLORIDE
     Indication: TYPE 2 DIABETES MELLITUS
     Dosage: 1000MG, 2X/DAY (1-0-1-0)
     Route: 048
     Dates: end: 20170515
  10. DILATREND [Concomitant]
     Active Substance: CARVEDILOL
     Dosage: 6.25MG, 2X/DAY  (1-0-1-0)
     Route: 048
  11. PANTOZOL [Concomitant]
     Active Substance: PANTOPRAZOLE SODIUM
     Dosage: 40MG, 1X/DAY (1-0-1-0)
     Route: 048

REACTIONS (2)
  - Oedema peripheral [Recovered/Resolved]
  - Acute kidney injury [Recovered/Resolved]

NARRATIVE: CASE EVENT DATE: 20170515
